FAERS Safety Report 20844970 (Version 1)
Quarter: 2022Q2

REPORT INFORMATION
  Report Type: Spontaneous
  Country: US (occurrence: US)
  Receive Date: 20220518
  Receipt Date: 20220518
  Transmission Date: 20220720
  Serious: Yes (Other)
  Sender: FDA-Public Use
  Company Number: US-PFIZER INC-202200667811

PATIENT
  Age: 41 Year
  Sex: Female

DRUGS (2)
  1. XELJANZ [Suspect]
     Active Substance: TOFACITINIB CITRATE
     Indication: Rheumatoid arthritis
     Dosage: 5 MG, 2X/DAY
     Route: 048
     Dates: start: 202203
  2. SAVELLA [Suspect]
     Active Substance: MILNACIPRAN HYDROCHLORIDE

REACTIONS (5)
  - Bronchitis [Recovering/Resolving]
  - Chills [Unknown]
  - Haemoglobin decreased [Unknown]
  - Blood triglycerides increased [Unknown]
  - Headache [Unknown]
